FAERS Safety Report 10109263 (Version 1)
Quarter: 2014Q2

REPORT INFORMATION
  Report Type: Spontaneous
  Country: US (occurrence: None)
  Receive Date: 20140421
  Receipt Date: 20140421
  Transmission Date: 20141212
  Serious: No
  Sender: FDA-Public Use
  Company Number: AEGR000309

PATIENT
  Age: 63 Year
  Sex: Female
  Weight: 63.5 kg

DRUGS (1)
  1. JUXTAPID [Suspect]
     Indication: TYPE IIA HYPERLIPIDAEMIA
     Route: 048
     Dates: start: 20140210, end: 20140217

REACTIONS (2)
  - Blood glucose increased [None]
  - Inflammation [None]
